FAERS Safety Report 20215185 (Version 2)
Quarter: 2022Q1

REPORT INFORMATION
  Report Type: Spontaneous
  Country: US (occurrence: None)
  Receive Date: 20211222
  Receipt Date: 20220314
  Transmission Date: 20220423
  Serious: Yes (Other)
  Sender: FDA-Public Use
  Company Number: US-ROCHE-2978970

PATIENT
  Sex: Female

DRUGS (2)
  1. OCREVUS [Suspect]
     Active Substance: OCRELIZUMAB
     Indication: Multiple sclerosis
     Dosage: 300 MG/ 10 ML
     Route: 042
     Dates: start: 20200821
  2. OXYBUTYNIN [Concomitant]
     Active Substance: OXYBUTYNIN
     Route: 065

REACTIONS (6)
  - Bladder disorder [Recovered/Resolved]
  - Multiple sclerosis relapse [Unknown]
  - Joint lock [Unknown]
  - Skin discolouration [Unknown]
  - Musculoskeletal stiffness [Unknown]
  - Poor peripheral circulation [Unknown]
